FAERS Safety Report 25088629 (Version 1)
Quarter: 2025Q1

REPORT INFORMATION
  Report Type: Report from Study
  Country: CA (occurrence: CA)
  Receive Date: 20250318
  Receipt Date: 20250318
  Transmission Date: 20250408
  Serious: Yes (Other)
  Sender: TEVA
  Company Number: CA-TEVA-VS-3310474

PATIENT
  Sex: Female

DRUGS (1)
  1. GLATIRAMER [Suspect]
     Active Substance: GLATIRAMER
     Indication: Relapsing-remitting multiple sclerosis
     Route: 058

REACTIONS (2)
  - Injection site discomfort [Unknown]
  - Injection site reaction [Unknown]
